FAERS Safety Report 13191421 (Version 1)
Quarter: 2017Q1

REPORT INFORMATION
  Report Type: Spontaneous
  Country: US (occurrence: US)
  Receive Date: 20170206
  Receipt Date: 20170206
  Transmission Date: 20170428
  Serious: Yes (Hospitalization)
  Sender: FDA-Public Use
  Company Number: None

PATIENT
  Age: 19 Year
  Sex: Male
  Weight: 90 kg

DRUGS (1)
  1. LEVETIRACETAM 750MG [Suspect]
     Active Substance: LEVETIRACETAM
     Indication: CONVULSION PROPHYLAXIS
     Dosage: ?          QUANTITY:60 TABLET(S);?
     Route: 048
     Dates: start: 20170128, end: 20170202

REACTIONS (8)
  - Confusional state [None]
  - Fatigue [None]
  - Coordination abnormal [None]
  - Gait disturbance [None]
  - Mental impairment [None]
  - Disorientation [None]
  - Tremor [None]
  - Motor dysfunction [None]

NARRATIVE: CASE EVENT DATE: 20170202
